FAERS Safety Report 14859996 (Version 1)
Quarter: 2018Q2

REPORT INFORMATION
  Report Type: Spontaneous
  Country: US (occurrence: US)
  Receive Date: 20180508
  Receipt Date: 20180508
  Transmission Date: 20180711
  Serious: Yes (Other)
  Sender: FDA-Public Use
  Company Number: US-ALLERGAN-1717019US

PATIENT
  Age: 24 Year
  Sex: Female

DRUGS (1)
  1. NORETHINDRONE;ETHINYLESTRADIOL;FERROUS FUMARATE UNK [Suspect]
     Active Substance: ETHINYL ESTRADIOL\NORETHINDRONE
     Indication: MENORRHAGIA
     Dosage: UNK UNK, QD
     Route: 048
     Dates: start: 201702

REACTIONS (4)
  - Irritability [Recovered/Resolved]
  - Off label use [Unknown]
  - Depression [Recovered/Resolved]
  - Mood swings [Recovered/Resolved]

NARRATIVE: CASE EVENT DATE: 201702
